FAERS Safety Report 16797366 (Version 3)
Quarter: 2019Q3

REPORT INFORMATION
  Report Type: Report from Study
  Country: PT (occurrence: PT)
  Receive Date: 20190912
  Receipt Date: 20190930
  Transmission Date: 20191005
  Serious: Yes (Hospitalization)
  Sender: FDA-Public Use
  Company Number: PT-ROCHE-2398229

PATIENT
  Age: 67 Year
  Sex: Male
  Weight: 94 kg

DRUGS (13)
  1. FONGAMIL [Concomitant]
     Indication: ONYCHOMYCOSIS
     Route: 065
     Dates: start: 20140319
  2. FUCIDINE [FUSIDIC ACID] [Concomitant]
     Indication: ACTINIC KERATOSIS
     Route: 065
     Dates: start: 20140611
  3. PANTOPRAZOL [PANTOPRAZOLE] [Concomitant]
     Active Substance: PANTOPRAZOLE
     Indication: GASTROINTESTINAL DISORDER PROPHYLAXIS
     Route: 065
     Dates: start: 20190906
  4. LOCETAR [Concomitant]
     Indication: TINEA INFECTION
  5. MYCOSTER [CICLOPIROX] [Concomitant]
     Route: 065
     Dates: start: 20121109
  6. VEMURAFENIB. [Suspect]
     Active Substance: VEMURAFENIB
     Indication: MALIGNANT MELANOMA
     Dosage: ON 28/AUG/2019, HE RECEIVED THE MOST RECENT DOSE (720 MG) OF VEMURAFENIB PRIOR TO AE (ADVERSE EVENT)
     Route: 048
     Dates: start: 20150408
  7. TRENTAL [Concomitant]
     Active Substance: PENTOXIFYLLINE
     Route: 065
     Dates: start: 20130220
  8. LOCETAR [Concomitant]
     Indication: ONYCHOMYCOSIS
     Route: 065
     Dates: start: 20121109
  9. PARACETAMOL [Concomitant]
     Active Substance: ACETAMINOPHEN
     Route: 065
     Dates: start: 20190906
  10. EMTRIX [Concomitant]
     Indication: ONYCHOMYCOSIS
     Route: 065
     Dates: start: 20121109
  11. EMTRIX [Concomitant]
     Indication: TINEA INFECTION
  12. FONGAMIL [Concomitant]
     Indication: TINEA INFECTION
  13. VARDENAFIL [Concomitant]
     Active Substance: VARDENAFIL HYDROCHLORIDE
     Indication: ERECTILE DYSFUNCTION
     Route: 065
     Dates: start: 20160601

REACTIONS (1)
  - Myocardial infarction [Recovered/Resolved]

NARRATIVE: CASE EVENT DATE: 20190828
